FAERS Safety Report 5342740-6 (Version None)
Quarter: 2007Q2

REPORT INFORMATION
  Report Type: 
  Country: None (occurrence: None)
  Receive Date: 20070601
  Receipt Date: 20070521
  Transmission Date: 20071010
  Serious: Yes (Other)
  Sender: FDA-Public Use
  Company Number: US-PFIZER INC-2007041528

PATIENT
  Sex: Female
  Weight: 74.8 kg

DRUGS (3)
  1. CHANTIX [Suspect]
     Indication: SMOKING CESSATION THERAPY
  2. CENTRUM [Concomitant]
  3. ASCORBIC ACID [Concomitant]

REACTIONS (3)
  - EYE HAEMORRHAGE [None]
  - EYE PAIN [None]
  - MYALGIA [None]
